FAERS Safety Report 9505912 (Version 1)
Quarter: 2013Q1

REPORT INFORMATION
  Report Type: Spontaneous
  Country: US (occurrence: None)
  Receive Date: 20130219
  Receipt Date: 20130219
  Transmission Date: 20140127
  Serious: Yes (Other)
  Sender: FDA-Public Use
  Company Number: 1210USA000198

PATIENT
  Age: 58 Year
  Sex: Male
  Weight: 76.2 kg

DRUGS (3)
  1. ZOCOR [Suspect]
     Indication: BLOOD CHOLESTEROL INCREASED
     Route: 048
     Dates: start: 201108, end: 20120705
  2. MINOCYCLINE (MINOCYCLINE) [Concomitant]
  3. COUMADIN (WARFARIN SODIUM) [Concomitant]

REACTIONS (3)
  - Gastritis [None]
  - Surgery [None]
  - Neuropathy peripheral [None]
